FAERS Safety Report 7359520-2 (Version None)
Quarter: 2011Q1

REPORT INFORMATION
  Report Type: 
  Country: None (occurrence: None)
  Receive Date: 20110317
  Receipt Date: 20110304
  Transmission Date: 20110831
  Serious: Yes (Other)
  Sender: FDA-Public Use
  Company Number: PHHY2010US43453

PATIENT
  Sex: Female
  Weight: 55.9 kg

DRUGS (3)
  1. NORCO [Concomitant]
     Dosage: 10/325
     Route: 048
     Dates: start: 20070602
  2. HYDROXYUREA [Concomitant]
     Indication: PAIN
     Dosage: 1500 MG DAILY
     Route: 048
     Dates: start: 20090921, end: 20100606
  3. EXJADE [Suspect]
     Indication: SICKLE CELL ANAEMIA
     Dosage: 1000 MG, QD
     Route: 048

REACTIONS (2)
  - PREMATURE LABOUR [None]
  - DRUG EXPOSURE DURING PREGNANCY [None]
